FAERS Safety Report 4441619-1 (Version None)
Quarter: 2004Q3

REPORT INFORMATION
  Report Type: 
  Country: None (occurrence: None)
  Receive Date: 20040907
  Receipt Date: 20040729
  Transmission Date: 20050211
  Serious: Yes (Hospitalization)
  Sender: FDA-Public Use
  Company Number: US-BRISTOL-MYERS SQUIBB COMPANY-12655999

PATIENT
  Age: 59 Year
  Sex: Female
  Weight: 68 kg

DRUGS (2)
  1. DEFINITY [Suspect]
     Indication: EXERCISE TEST
     Dosage: DILUTED BOLUS, 3CC AT REST AND 2CC STRESS
     Route: 040
     Dates: start: 20040728, end: 20040728
  2. ATENOLOL [Concomitant]
     Dosage: ^HAD NOT TAKEN IN 24 HOURS^ AT TIME OF EXERCISE TEST

REACTIONS (1)
  - ATRIAL FIBRILLATION [None]
